FAERS Safety Report 9341111 (Version 2)
Quarter: 2013Q2

REPORT INFORMATION
  Report Type: Spontaneous
  Country: JP (occurrence: JP)
  Receive Date: 20130610
  Receipt Date: 20130618
  Transmission Date: 20140414
  Serious: Yes (Hospitalization)
  Sender: FDA-Public Use
  Company Number: JP-009507513-1306JPN003347

PATIENT
  Age: 60 Year
  Sex: Female

DRUGS (8)
  1. REBETOL [Suspect]
     Indication: CHRONIC HEPATITIS C
     Dosage: 800 MG, QD
     Route: 048
     Dates: start: 20130314
  2. REBETOL [Suspect]
     Dosage: 600 MG, QD
     Route: 048
     Dates: start: 20130321
  3. REBETOL [Suspect]
     Dosage: 400 MG, QD
     Route: 048
     Dates: start: 20130404
  4. REBETOL [Suspect]
     Dosage: 200 MG, QD
     Route: 048
     Dates: start: 20130411
  5. PEGINTRON [Suspect]
     Indication: CHRONIC HEPATITIS C
     Dosage: 100 MICROGRAM, QW
     Route: 058
     Dates: start: 20130314
  6. PEGINTRON [Suspect]
     Dosage: 100 MICROGRAM,QW
     Route: 058
     Dates: start: 20130321
  7. PEGINTRON [Suspect]
     Dosage: 100 MICROGRAM, QW
     Route: 058
     Dates: start: 20130328
  8. TELAVIC [Suspect]
     Indication: CHRONIC HEPATITIS C
     Dosage: 2250 MG, QD
     Route: 048
     Dates: start: 20130314

REACTIONS (1)
  - Rash [Recovered/Resolved]
